FAERS Safety Report 24935153 (Version 1)
Quarter: 2025Q1

REPORT INFORMATION
  Report Type: Spontaneous
  Country: US (occurrence: US)
  Receive Date: 20250206
  Receipt Date: 20250206
  Transmission Date: 20250409
  Serious: Yes (Death)
  Sender: ROCHE
  Company Number: US-ROCHE-10000199283

PATIENT
  Sex: Female

DRUGS (3)
  1. ACTEMRA [Suspect]
     Active Substance: TOCILIZUMAB
     Indication: Rheumatoid arthritis
     Route: 040
     Dates: start: 202307
  2. ACTEMRA [Suspect]
     Active Substance: TOCILIZUMAB
     Route: 040
     Dates: start: 202307
  3. TYMLOS [Concomitant]
     Active Substance: ABALOPARATIDE
     Indication: Senile osteoporosis

REACTIONS (1)
  - Death [Fatal]
